FAERS Safety Report 21607749 (Version 1)
Quarter: 2022Q4

REPORT INFORMATION
  Report Type: Spontaneous
  Country: US (occurrence: US)
  Receive Date: 20221117
  Receipt Date: 20221117
  Transmission Date: 20230113
  Serious: Yes (Hospitalization, Other)
  Sender: FDA-Public Use
  Company Number: US-ASTELLAS-2022US040622

PATIENT
  Age: 55 Year
  Sex: Female

DRUGS (7)
  1. TACROLIMUS [Interacting]
     Active Substance: TACROLIMUS
     Indication: Renal transplant
     Dosage: 1 MG EVERY MORNING, 2 MG EVERY NIGHT, TWICE DAILY
     Route: 065
  2. TACROLIMUS [Interacting]
     Active Substance: TACROLIMUS
     Route: 065
  3. TACROLIMUS [Interacting]
     Active Substance: TACROLIMUS
     Route: 065
  4. PAXLOVID [Interacting]
     Active Substance: NIRMATRELVIR\RITONAVIR
     Indication: COVID-19
     Dosage: UNK UNK, UNKNOWN FREQ.
     Route: 065
  5. MYCOPHENOLIC ACID [Concomitant]
     Active Substance: MYCOPHENOLIC ACID
     Indication: Renal transplant
     Route: 065
  6. PREDNISONE [Concomitant]
     Active Substance: PREDNISONE
     Indication: Renal transplant
     Route: 065
  7. MYCOPHENOLIC ACID [Concomitant]
     Active Substance: MYCOPHENOLIC ACID
     Indication: Renal transplant
     Dosage: UNK UNK, UNKNOWN FREQ.
     Route: 065

REACTIONS (4)
  - Toxic encephalopathy [Recovering/Resolving]
  - Toxicity to various agents [Recovering/Resolving]
  - Acute kidney injury [Unknown]
  - Drug interaction [Unknown]
